FAERS Safety Report 7675532-3 (Version None)
Quarter: 2011Q3

REPORT INFORMATION
  Report Type: 
  Country: None (occurrence: None)
  Receive Date: 20110810
  Receipt Date: 20110802
  Transmission Date: 20111222
  Serious: Yes (Hospitalization, Disabling)
  Sender: FDA-Public Use
  Company Number: US-BAYER-201034479NA

PATIENT
  Age: 24 Year
  Sex: Female
  Weight: 49.887 kg

DRUGS (2)
  1. YASMIN [Suspect]
     Indication: CONTRACEPTION
  2. YASMIN [Suspect]
     Indication: ACNE
     Dosage: UNK
     Route: 048
     Dates: start: 20050101, end: 20070819

REACTIONS (20)
  - HYPOAESTHESIA EYE [None]
  - HYPOAESTHESIA ORAL [None]
  - ASTHENIA [None]
  - INSOMNIA [None]
  - MIGRAINE WITH AURA [None]
  - HEADACHE [None]
  - DYSGRAPHIA [None]
  - HEMIPLEGIA [None]
  - HYPOAESTHESIA [None]
  - VISUAL IMPAIRMENT [None]
  - ALOPECIA [None]
  - COORDINATION ABNORMAL [None]
  - TREMOR [None]
  - PARAESTHESIA ORAL [None]
  - PARAESTHESIA [None]
  - SLEEP DISORDER [None]
  - CEREBROVASCULAR ACCIDENT [None]
  - BRADYKINESIA [None]
  - MOTOR DYSFUNCTION [None]
  - PAIN [None]
